FAERS Safety Report 7039267-2 (Version None)
Quarter: 2010Q4

REPORT INFORMATION
  Report Type: 
  Country: None (occurrence: None)
  Receive Date: 20101012
  Receipt Date: 20100930
  Transmission Date: 20110411
  Serious: Yes (Hospitalization, Other)
  Sender: FDA-Public Use
  Company Number: CO-WYE-H17874010

PATIENT
  Sex: Male

DRUGS (11)
  1. RAPAMUNE [Suspect]
     Indication: PROPHYLAXIS AGAINST TRANSPLANT REJECTION
     Route: 048
     Dates: start: 20090815
  2. PREDNISOLONE [Concomitant]
     Dosage: 5 MG (FREQUENCY UNSPECIFIED)
  3. GLIBENCLAMIDE [Concomitant]
     Dosage: 5 MG (^1 TABLET IN AM, 1 TABLET AT NIGHT^)
  4. LOSARTAN [Concomitant]
     Dosage: 50 MG (FREQUENCY UNSPECIFIED)
  5. MYCOPHENOLATE MOFETIL [Concomitant]
     Dosage: UNSPECIFIED
     Dates: start: 20100815
  6. METOPROLOL [Concomitant]
     Dosage: 100 MG (FREQUENCY UNSPECIFIED)
  7. LOVASTATIN [Concomitant]
     Dosage: 20 MG (FREQUENCY UNSPECIFIED)
     Dates: start: 20090815
  8. OMEPRAZOLE [Concomitant]
     Dosage: 20 MG (FREQUENCY UNSPECIFIED)
     Dates: start: 20090815
  9. TRIMETHOPRIM [Concomitant]
     Indication: INFECTION PROPHYLAXIS
     Dosage: 160/800 MG DAILY
     Dates: start: 20100815
  10. AMLODIPINE [Suspect]
     Route: 048
     Dates: start: 20100601
  11. ENALAPRIL MALEATE [Concomitant]
     Dosage: 20 MG (FREQUENCY UNSPECIFIED)

REACTIONS (4)
  - HERPES VIRUS INFECTION [None]
  - HIP ARTHROPLASTY [None]
  - INGUINAL HERNIA [None]
  - RASH GENERALISED [None]
